FAERS Safety Report 19389717 (Version 1)
Quarter: 2021Q2

REPORT INFORMATION
  Report Type: Report from Study
  Country: US (occurrence: US)
  Receive Date: 20210608
  Receipt Date: 20210608
  Transmission Date: 20210717
  Serious: Yes (Other)
  Sender: FDA-Public Use
  Company Number: US-TAKEDA-2021TUS035768

PATIENT
  Age: 51 Year
  Sex: Female

DRUGS (1)
  1. 489 (LISDEXAMFETAMINE DIMESYLATE) [Suspect]
     Active Substance: LISDEXAMFETAMINE DIMESYLATE
     Indication: EATING DISORDER
     Dosage: 1 DOSAGE FORM (CAPSULE), QD
     Route: 048
     Dates: end: 20201228

REACTIONS (2)
  - Arthritis [Not Recovered/Not Resolved]
  - Weight increased [Not Recovered/Not Resolved]

NARRATIVE: CASE EVENT DATE: 20201228
